FAERS Safety Report 21958992 (Version 11)
Quarter: 2024Q4

REPORT INFORMATION
  Report Type: Spontaneous
  Country: US (occurrence: US)
  Receive Date: 20230206
  Receipt Date: 20241209
  Transmission Date: 20250114
  Serious: No
  Sender: PFIZER
  Company Number: US-PFIZER INC-PV202300021974

PATIENT
  Age: 78 Year
  Sex: Female
  Weight: 79.365 kg

DRUGS (4)
  1. IBRANCE [Suspect]
     Active Substance: PALBOCICLIB
     Indication: Breast cancer stage IV
     Dosage: 125 MG
     Dates: start: 2022
  2. IBRANCE [Suspect]
     Active Substance: PALBOCICLIB
     Indication: Breast cancer female
     Dosage: 100 MG
     Dates: start: 202207
  3. IBRANCE [Suspect]
     Active Substance: PALBOCICLIB
     Dosage: 1 TABLET FOR 21 DAYS AND 7 DAYS OFF
     Route: 048
     Dates: start: 20230202
  4. LETROZOLE [Concomitant]
     Active Substance: LETROZOLE
     Dosage: UNK
     Dates: start: 202206

REACTIONS (11)
  - Blood test abnormal [Unknown]
  - Feeling jittery [Unknown]
  - Feeling abnormal [Unknown]
  - Anxiety [Not Recovered/Not Resolved]
  - Malaise [Unknown]
  - Fatigue [Recovering/Resolving]
  - Neutrophil count decreased [Recovered/Resolved]
  - Emotional disorder [Unknown]
  - Pain [Unknown]
  - Stress [Unknown]
  - Psychiatric symptom [Unknown]

NARRATIVE: CASE EVENT DATE: 20220701
